FAERS Safety Report 5035093-4 (Version None)
Quarter: 2006Q2

REPORT INFORMATION
  Report Type: 
  Country: None (occurrence: None)
  Receive Date: 20060519
  Receipt Date: 20060130
  Transmission Date: 20061013
  Serious: No
  Sender: FDA-Public Use
  Company Number: TPA2006A00182

PATIENT
  Sex: 0

DRUGS (5)
  1. ROZEREM [Suspect]
     Dosage: 8 MG, HS, PER ORAL
     Route: 048
  2. DEPAKOTE [Concomitant]
  3. ZYPREXA [Concomitant]
  4. LAMICTAL [Concomitant]
  5. ZOLOFT [Concomitant]

REACTIONS (2)
  - HALLUCINATIONS, MIXED [None]
  - PANIC REACTION [None]
